FAERS Safety Report 4655297-X (Version None)
Quarter: 2005Q2

REPORT INFORMATION
  Report Type: 
  Country: None (occurrence: None)
  Receive Date: 20050505
  Receipt Date: 20050422
  Transmission Date: 20051028
  Serious: Yes (Hospitalization)
  Sender: FDA-Public Use
  Company Number: US015126

PATIENT
  Age: 45 Year
  Sex: Female

DRUGS (4)
  1. GABITRIL [Suspect]
     Indication: ANXIETY
     Dosage: 4 MG QHS ORAL
     Route: 048
  2. GABITRIL [Suspect]
     Indication: FIBROMYALGIA
     Dosage: 4 MG QHS ORAL
     Route: 048
  3. GABITRIL [Suspect]
     Indication: ANXIETY
     Dosage: 16 MG QHS ORAL
     Route: 048
  4. GABITRIL [Suspect]
     Indication: FIBROMYALGIA
     Dosage: 16 MG QHS ORAL
     Route: 048

REACTIONS (4)
  - AGGRESSION [None]
  - AGITATION [None]
  - ALCOHOL INTERACTION [None]
  - CONFUSIONAL STATE [None]
